FAERS Safety Report 8099624-2 (Version None)
Quarter: 2012Q1

REPORT INFORMATION
  Report Type: 
  Country: None (occurrence: None)
  Receive Date: 20120131
  Receipt Date: 20120125
  Transmission Date: 20120608
  Serious: Yes (Hospitalization, Other)
  Sender: FDA-Public Use
  Company Number: DE-PFIZER INC-2011315840

PATIENT
  Age: 80 Year
  Sex: Male
  Weight: 102 kg

DRUGS (4)
  1. AGGRENOX [Concomitant]
     Indication: CAROTID ARTERY STENOSIS
     Dosage: UNK
     Dates: start: 20070101, end: 20110101
  2. ATORVASTATIN CALCIUM [Suspect]
     Indication: HYPERLIPIDAEMIA
     Dosage: 40 MG, UNK
  3. AGGRENOX [Concomitant]
     Indication: HYPERLIPIDAEMIA
  4. ATORVASTATIN CALCIUM [Suspect]
     Indication: CAROTID ARTERY STENOSIS
     Dosage: 20 MG, 1X/DAY
     Dates: start: 20070101, end: 20110101

REACTIONS (4)
  - APOLIPOPROTEIN A-I INCREASED [None]
  - CAROTID ARTERY OCCLUSION [None]
  - BLOOD HOMOCYSTEINE INCREASED [None]
  - THERAPEUTIC RESPONSE UNEXPECTED [None]
